FAERS Safety Report 14653843 (Version 5)
Quarter: 2019Q3

REPORT INFORMATION
  Report Type: Spontaneous
  Country: US (occurrence: US)
  Receive Date: 20180319
  Receipt Date: 20190918
  Transmission Date: 20191004
  Serious: Yes (Hospitalization, Other)
  Sender: FDA-Public Use
  Company Number: US-PFIZER INC-2018085978

PATIENT
  Age: 64 Year
  Sex: Male

DRUGS (1)
  1. XELJANZ XR [Suspect]
     Active Substance: TOFACITINIB CITRATE
     Indication: RHEUMATOID ARTHRITIS
     Dosage: 11 MG, DAILY
     Route: 048
     Dates: start: 201802, end: 2019

REACTIONS (9)
  - Renal failure [Unknown]
  - Malaise [Unknown]
  - Product dose omission [Unknown]
  - Diarrhoea [Unknown]
  - Abdominal discomfort [Unknown]
  - Asthenia [Unknown]
  - Feeling abnormal [Unknown]
  - Allergic sinusitis [Unknown]
  - Pruritus [Unknown]

NARRATIVE: CASE EVENT DATE: 2018
